FAERS Safety Report 9127652 (Version 1)
Quarter: 2013Q1

REPORT INFORMATION
  Report Type: Spontaneous
  Country: US (occurrence: US)
  Receive Date: 20130228
  Receipt Date: 20130228
  Transmission Date: 20140127
  Serious: No
  Sender: FDA-Public Use
  Company Number: US-GLAXOSMITHKLINE-A0990064A

PATIENT
  Age: 41 Year
  Sex: Female

DRUGS (8)
  1. LAMICTAL [Suspect]
     Indication: BIPOLAR DISORDER
     Dosage: 100MG PER DAY
     Route: 048
     Dates: start: 201206
  2. KLONOPIN [Concomitant]
  3. LISINOPRIL + HYDROCHLOROTHIAZIDE [Concomitant]
  4. MOBIC [Concomitant]
  5. FLEXERIL [Concomitant]
  6. CELEXA [Concomitant]
  7. DEPAKOTE [Concomitant]
  8. HYDROCODONE [Concomitant]

REACTIONS (1)
  - Drug ineffective [Recovering/Resolving]
